FAERS Safety Report 5571414-1 (Version None)
Quarter: 2007Q4

REPORT INFORMATION
  Report Type: 
  Country: None (occurrence: None)
  Receive Date: 20071221
  Receipt Date: 20071025
  Transmission Date: 20080405
  Serious: No
  Sender: FDA-Public Use
  Company Number: A0689800A

PATIENT
  Age: 38 Year
  Sex: Female

DRUGS (2)
  1. FLONASE [Suspect]
     Dosage: 2SPR TWICE PER DAY
     Route: 045
     Dates: start: 19990101, end: 20070101
  2. ALLEGRA [Concomitant]

REACTIONS (4)
  - EYE INFECTION [None]
  - NASAL ULCER [None]
  - RHINORRHOEA [None]
  - STAPHYLOCOCCAL INFECTION [None]
